FAERS Safety Report 16810138 (Version 1)
Quarter: 2019Q3

REPORT INFORMATION
  Report Type: Spontaneous
  Country: NL (occurrence: NL)
  Receive Date: 20190916
  Receipt Date: 20190916
  Transmission Date: 20191005
  Serious: Yes (Hospitalization)
  Sender: FDA-Public Use
  Company Number: NL-MYLANLABS-2019M1085439

PATIENT
  Age: 59 Year
  Sex: Female
  Weight: 63 kg

DRUGS (12)
  1. KEYTRUDA [Suspect]
     Active Substance: PEMBROLIZUMAB
     Dosage: 200 MILLIGRAM, Q3W,(EVERY THREE WEEKS-FOURTH CYCLE)
     Dates: start: 20190321
  2. CISPLATIN. [Suspect]
     Active Substance: CISPLATIN
     Dosage: UNK, 75 PERCENT DOSE IN THRID CYCLE
     Dates: start: 20190228
  3. KEYTRUDA [Suspect]
     Active Substance: PEMBROLIZUMAB
     Dosage: 200 MILLIGRAM, Q3W,(EVERY THREE WEEKS-THIRD CYCLE)
     Dates: start: 20190228
  4. KEYTRUDA [Suspect]
     Active Substance: PEMBROLIZUMAB
     Indication: NON-SMALL CELL LUNG CANCER
     Dosage: 200 MILLIGRAM, Q3W, (EVERY THREE WEEKSS-FIRSTCYCLE)
     Dates: start: 20190117
  5. CISPLATIN. [Suspect]
     Active Substance: CISPLATIN
     Indication: LUNG NEOPLASM MALIGNANT
     Dosage: UNK, FIRST CYCLE
     Dates: start: 20190117
  6. CISPLATIN. [Suspect]
     Active Substance: CISPLATIN
     Dosage: UNK, SECOND CYCLE
     Dates: start: 20190207
  7. PEMETREXED. [Suspect]
     Active Substance: PEMETREXED
     Indication: LUNG NEOPLASM MALIGNANT
     Dosage: UNK,FIRST CYLCE
     Dates: start: 20190117
  8. PEMETREXED. [Suspect]
     Active Substance: PEMETREXED
     Dosage: UNK,FOURTH CYCLE
     Dates: start: 20190321
  9. CISPLATIN. [Suspect]
     Active Substance: CISPLATIN
     Dosage: UNK,75 PERCENT DOSE IN FOURTH CYCLE
     Dates: start: 20190321
  10. PEMETREXED. [Suspect]
     Active Substance: PEMETREXED
     Dosage: UNK, SECOND CYCLE
     Dates: start: 20190207
  11. PEMETREXED. [Suspect]
     Active Substance: PEMETREXED
     Dosage: UNK, THRID CYCLE
     Dates: start: 20190228
  12. KEYTRUDA [Suspect]
     Active Substance: PEMBROLIZUMAB
     Dosage: 200 MILLIGRAM, Q3W,(EVERY THREE WEEKS-SECOND CYCLE)
     Dates: start: 20190207

REACTIONS (3)
  - Nausea [Recovered/Resolved]
  - Pyrexia [Recovered/Resolved]
  - Influenza virus test positive [Unknown]

NARRATIVE: CASE EVENT DATE: 20190131
